FAERS Safety Report 22597787 (Version 1)
Quarter: 2023Q2

REPORT INFORMATION
  Report Type: Spontaneous
  Country: US (occurrence: US)
  Receive Date: 20230614
  Receipt Date: 20230614
  Transmission Date: 20230722
  Serious: Yes (Hospitalization)
  Sender: FDA-Public Use
  Company Number: US-STRIDES ARCOLAB LIMITED-2023SP007745

PATIENT
  Age: 60 Year
  Sex: Female

DRUGS (18)
  1. PREDNISOLONE [Suspect]
     Active Substance: PREDNISOLONE
     Indication: Viral myocarditis
     Dosage: UNK
     Route: 065
     Dates: start: 2020
  2. METHYLPREDNISOLONE [Suspect]
     Active Substance: METHYLPREDNISOLONE
     Indication: Viral myocarditis
     Dosage: UNK
     Route: 065
     Dates: start: 2020
  3. DOBUTAMINE [Concomitant]
     Active Substance: DOBUTAMINE HYDROCHLORIDE
     Indication: Hypotension
     Dosage: UNK
     Route: 042
     Dates: start: 2020
  4. ASPIRIN [Concomitant]
     Active Substance: ASPIRIN
     Indication: Acute coronary syndrome
     Dosage: UNK
     Route: 065
     Dates: start: 2020
  5. HEPARIN [Concomitant]
     Active Substance: HEPARIN SODIUM
     Indication: Anticoagulant therapy
     Dosage: UNK
     Route: 042
     Dates: start: 2020
  6. NITROGLYCERIN [Concomitant]
     Active Substance: NITROGLYCERIN
     Indication: Acute coronary syndrome
     Dosage: UNK
     Route: 042
     Dates: start: 2020
  7. METOPROLOL [Concomitant]
     Active Substance: METOPROLOL
     Indication: Acute coronary syndrome
     Dosage: UNK
     Route: 065
     Dates: start: 2020
  8. METOPROLOL [Concomitant]
     Active Substance: METOPROLOL
     Dosage: UNK (METOPROLOL SUCCINATE)
     Route: 065
  9. ATORVASTATIN [Concomitant]
     Active Substance: ATORVASTATIN
     Indication: Acute coronary syndrome
     Dosage: UNK
     Route: 065
     Dates: start: 2020
  10. FUROSEMIDE [Concomitant]
     Active Substance: FUROSEMIDE
     Indication: Viral myocarditis
     Dosage: UNK, SINGLE (RECEIVED SINGLE DOSE)
     Route: 042
     Dates: start: 2020
  11. PHENYLEPHRINE [Concomitant]
     Active Substance: PHENYLEPHRINE HYDROCHLORIDE
     Indication: Hypotension
     Dosage: UNK (ESCALATED DOSES)
     Route: 065
     Dates: start: 2020
  12. EPINEPHRINE [Concomitant]
     Active Substance: EPINEPHRINE
     Indication: Hypotension
     Dosage: UNK (ESCALATED DOSES)
     Route: 065
     Dates: start: 2020
  13. NOREPINEPHRINE [Concomitant]
     Active Substance: NOREPINEPHRINE
     Indication: Hypotension
     Dosage: UNK (ESCALATED DOSES)
     Route: 065
     Dates: start: 2020
  14. VASOPRESSIN [Concomitant]
     Active Substance: VASOPRESSIN
     Indication: Hypotension
     Dosage: UNK (ESCALATED DOSES)
     Route: 065
     Dates: start: 2020
  15. AMIODARONE [Concomitant]
     Active Substance: AMIODARONE
     Indication: Ventricular tachycardia
     Dosage: UNK
     Route: 065
     Dates: start: 2020
  16. LIDOCAINE [Concomitant]
     Active Substance: LIDOCAINE
     Indication: Ventricular tachycardia
     Dosage: UNK
     Route: 065
     Dates: start: 2020
  17. ISOSORBIDE DINITRATE [Concomitant]
     Active Substance: ISOSORBIDE DINITRATE
     Indication: Product used for unknown indication
     Dosage: UNK
     Route: 065
     Dates: start: 2020
  18. HYDRALAZINE [Concomitant]
     Active Substance: HYDRALAZINE HYDROCHLORIDE
     Indication: Product used for unknown indication
     Dosage: UNK
     Route: 065
     Dates: start: 2020

REACTIONS (1)
  - Pseudomonal bacteraemia [Unknown]

NARRATIVE: CASE EVENT DATE: 20200101
